FAERS Safety Report 23362492 (Version 1)
Quarter: 2024Q1

REPORT INFORMATION
  Report Type: Spontaneous
  Country: US (occurrence: None)
  Receive Date: 20240103
  Receipt Date: 20240103
  Transmission Date: 20240410
  Serious: Yes (Disabling)
  Sender: FDA-Public Use
  Company Number: None

PATIENT
  Age: 52 Year
  Sex: Female
  Weight: 81.9 kg

DRUGS (9)
  1. PAXLOVID [Suspect]
     Active Substance: NIRMATRELVIR\RITONAVIR
     Indication: COVID-19
     Dosage: OTHER QUANTITY : 1 5-DOSE PACK;?FREQUENCY : TWICE A DAY;?
     Route: 048
     Dates: start: 20231230, end: 20240103
  2. ESTRADIOL [Concomitant]
     Active Substance: ESTRADIOL
  3. oral progesterone [Concomitant]
  4. hormone replacement [Concomitant]
  5. Proventil rescue inhaler [Concomitant]
  6. VITAMIN D [Concomitant]
     Active Substance: VITAMIN D NOS
  7. CALCIUM CARBONATE [Concomitant]
  8. TYLENOL [Concomitant]
     Active Substance: ACETAMINOPHEN
  9. ALEVE [Concomitant]
     Active Substance: NAPROXEN SODIUM

REACTIONS (5)
  - SARS-CoV-2 test positive [None]
  - Dysgeusia [None]
  - Abdominal pain [None]
  - Musculoskeletal disorder [None]
  - Sciatica [None]

NARRATIVE: CASE EVENT DATE: 20240102
